FAERS Safety Report 8538994-5 (Version None)
Quarter: 2012Q3

REPORT INFORMATION
  Report Type: 
  Country: None (occurrence: None)
  Receive Date: 20120726
  Receipt Date: 20120723
  Transmission Date: 20120928
  Serious: Yes (Other)
  Sender: FDA-Public Use
  Company Number: PHHY2012IT015152

PATIENT
  Age: 70 Year
  Sex: Female

DRUGS (4)
  1. DASATINIB [Concomitant]
     Dosage: 70 MG, BID
  2. CLARITHROMYCIN [Concomitant]
     Dosage: 500 MG, BID
     Dates: start: 20110520
  3. NILOTINIB [Suspect]
     Indication: CHRONIC MYELOID LEUKAEMIA
     Dosage: 600 MG, DAILY
     Dates: start: 20050501
  4. HYDROXYUREA [Concomitant]

REACTIONS (2)
  - WHITE BLOOD CELL COUNT INCREASED [None]
  - DRUG INEFFECTIVE [None]
